FAERS Safety Report 5061390-2 (Version None)
Quarter: 2006Q3

REPORT INFORMATION
  Report Type: 
  Country: None (occurrence: None)
  Receive Date: 20060719
  Receipt Date: 20060719
  Transmission Date: 20061208
  Serious: Yes (Hospitalization)
  Sender: FDA-Public Use
  Company Number: None

PATIENT
  Age: 51 Year

DRUGS (6)
  1. IBUPROFEN [Suspect]
     Indication: PAIN
     Dosage: 600 MG TID
     Dates: start: 20060516
  2. ASPIRIN [Concomitant]
  3. ZOCOR [Concomitant]
  4. ACETAMINOPHEN [Concomitant]
  5. QUETIAPINE FUMARATE [Concomitant]
  6. BENZTROPINE MESYLATE [Concomitant]

REACTIONS (1)
  - NEPHRITIS INTERSTITIAL [None]
